FAERS Safety Report 5315068-8 (Version None)
Quarter: 2007Q2

REPORT INFORMATION
  Report Type: 
  Country: None (occurrence: None)
  Receive Date: 20070502
  Receipt Date: 20070418
  Transmission Date: 20071010
  Serious: Yes (Other)
  Sender: FDA-Public Use
  Company Number: JP-ROCHE-486109

PATIENT
  Age: 11 Year
  Sex: Male
  Weight: 52 kg

DRUGS (5)
  1. TAMIFLU [Suspect]
     Route: 048
     Dates: start: 20070205, end: 20070205
  2. TAMIFLU [Suspect]
     Route: 048
     Dates: start: 20070206, end: 20070206
  3. NIPOLAZIN [Concomitant]
     Route: 048
     Dates: start: 20070205, end: 20070210
  4. RESPLEN [Concomitant]
     Route: 048
     Dates: start: 20070205, end: 20070210
  5. MUCODYNE [Concomitant]
     Route: 048
     Dates: start: 20070205, end: 20070210

REACTIONS (1)
  - ABNORMAL BEHAVIOUR [None]
